FAERS Safety Report 22775392 (Version 6)
Quarter: 2023Q4

REPORT INFORMATION
  Report Type: Report from Study
  Country: US (occurrence: US)
  Receive Date: 20230802
  Receipt Date: 20231219
  Transmission Date: 20240109
  Serious: Yes (Hospitalization, Other)
  Sender: FDA-Public Use
  Company Number: US-ABBVIE-5349276

PATIENT
  Age: 68 Year
  Sex: Female
  Weight: 75 kg

DRUGS (32)
  1. HUMIRA [Suspect]
     Active Substance: ADALIMUMAB
     Indication: Crohn^s disease
     Dosage: FORM STRENGTH: 40 MILLIGRAM, LAST ADMIN DATE: 2023
     Route: 058
     Dates: start: 20230822
  2. HUMIRA [Suspect]
     Active Substance: ADALIMUMAB
     Dosage: FORM STRENGTH: 40 MILLIGRAM, LAST ADMIN DATE: DEC 2022
     Route: 058
     Dates: start: 20221206
  3. HUMIRA [Suspect]
     Active Substance: ADALIMUMAB
     Dosage: FORM STRENGTH: 40 MILLIGRAM, LAST ADMIN DATE: MAR 2023
     Route: 058
     Dates: start: 20230321
  4. HUMIRA [Suspect]
     Active Substance: ADALIMUMAB
     Dosage: FORM STRENGTH: 40 MILLIGRAM, LAST ADMIN DATE: JAN 2023
     Route: 058
     Dates: start: 20230103
  5. HUMIRA [Suspect]
     Active Substance: ADALIMUMAB
     Dosage: FORM STRENGTH: 40 MILLIGRAM, LAST ADMIN DATE: FEB 2023
     Route: 058
     Dates: start: 20230201
  6. HUMIRA [Suspect]
     Active Substance: ADALIMUMAB
     Dosage: FORM STRENGTH: 40 MILLIGRAM
     Route: 058
     Dates: start: 20221221
  7. HUMIRA [Suspect]
     Active Substance: ADALIMUMAB
     Dosage: FORM STRENGTH: 40 MILLIGRAM, LAST ADMIN DATE:2023
     Route: 058
     Dates: start: 20230117
  8. HUMIRA [Suspect]
     Active Substance: ADALIMUMAB
     Dosage: FORM STRENGTH: 40 MILLIGRAM, LAST ADMIN DATE: 2023
     Route: 058
     Dates: start: 20230221
  9. HUMIRA [Suspect]
     Active Substance: ADALIMUMAB
     Dosage: FORM STRENGTH: 40 MILLIGRAM, LAST ADMIN DATE: MAR 2023
     Route: 058
     Dates: start: 20230307
  10. HUMIRA [Suspect]
     Active Substance: ADALIMUMAB
     Dosage: FORM STRENGTH: 40 MILLIGRAM, LAST ADMIN DATE: 2023
     Route: 058
     Dates: start: 20230324
  11. HUMIRA [Suspect]
     Active Substance: ADALIMUMAB
     Dosage: FORM STRENGTH: 40 MILLIGRAM, LAST ADMIN DATE: APR 2023
     Route: 058
     Dates: start: 20230404
  12. HUMIRA [Suspect]
     Active Substance: ADALIMUMAB
     Dosage: FORM STRENGTH: 40 MILLIGRAM, LAST ADMIN DATE: 2023
     Route: 058
     Dates: start: 20230418
  13. HUMIRA [Suspect]
     Active Substance: ADALIMUMAB
     Dosage: FORM STREGNTH: 40 MILLIGRAM, LAST ADMIN DATE: MAY 2023
     Route: 058
     Dates: start: 20230502
  14. HUMIRA [Suspect]
     Active Substance: ADALIMUMAB
     Dosage: FORM STRENGTH: 40 MILLIGRAM, LAST ADMIN DATE: MAY 2023
     Route: 058
     Dates: start: 20230516
  15. HUMIRA [Suspect]
     Active Substance: ADALIMUMAB
     Dosage: FORM STRENGTH: 40 MILLIGRAM, LAST ADMIN DATE: 2023
     Route: 058
     Dates: start: 20230530
  16. HUMIRA [Suspect]
     Active Substance: ADALIMUMAB
     Dosage: FORM STRENGTH: 40 MILLIGRAM, LAST ADMIN DATE: JUN 2023
     Route: 058
     Dates: start: 20230613
  17. HUMIRA [Suspect]
     Active Substance: ADALIMUMAB
     Dosage: FORM STRENGTH: 40 MILLIGRAM, LAST ADMIN DATE: 2023
     Route: 058
     Dates: start: 20230627
  18. HUMIRA [Suspect]
     Active Substance: ADALIMUMAB
     Dosage: FORM STRENGTH: 40 MILLIGRAM, LAST ADMIN DATE: JUL 2023
     Route: 058
     Dates: start: 20230712
  19. HUMIRA [Suspect]
     Active Substance: ADALIMUMAB
     Dosage: FORM STRENGTH: 40 MILLIGRAM, LAST ADMIN DATE: 2023
     Route: 058
     Dates: start: 20230725
  20. HUMIRA [Suspect]
     Active Substance: ADALIMUMAB
     Dosage: FORM STRENGTH- 40 MILLIGRAM, LAST ADMIN DATE: AUG 2023
     Route: 058
     Dates: start: 20230808
  21. HUMIRA [Suspect]
     Active Substance: ADALIMUMAB
     Dosage: FORM STRENGTH: 40 MILLIGRAM?LAST ADMIN DATE: SEP 2023
     Route: 058
     Dates: start: 20230905
  22. HUMIRA [Suspect]
     Active Substance: ADALIMUMAB
     Dosage: FORM STRENGTH: 40 MILLIGRAM?LAST ADMIN DATE: SEP 2023
     Route: 058
     Dates: start: 20230919
  23. HUMIRA [Suspect]
     Active Substance: ADALIMUMAB
     Dosage: FORM STRENGTH: 40 MILLIGRAM?LAST ADMIN DATE: OCT 2023
     Route: 058
     Dates: start: 20231003
  24. HUMIRA [Suspect]
     Active Substance: ADALIMUMAB
     Dosage: FORM STRENGTH: 40 MILLIGRAM
     Route: 058
     Dates: start: 20231017
  25. METFORMIN [Concomitant]
     Active Substance: METFORMIN HYDROCHLORIDE
     Indication: Product used for unknown indication
     Dosage: TIME INTERVAL: 0.33333333 DAYS
  26. HYDROCHLOROTHIAZIDE\LISINOPRIL [Concomitant]
     Active Substance: HYDROCHLOROTHIAZIDE\LISINOPRIL
     Indication: Product used for unknown indication
     Dosage: 10- 12.5 MG
  27. VITAMIN D [Concomitant]
     Active Substance: VITAMIN D NOS
     Indication: Product used for unknown indication
     Dosage: 1.25 MILLIGRAM
  28. VITAMIN C [Concomitant]
     Active Substance: ASCORBIC ACID
     Indication: Product used for unknown indication
  29. FAMOTIDINE [Concomitant]
     Active Substance: FAMOTIDINE
     Indication: Product used for unknown indication
  30. SUCRALFATE [Concomitant]
     Active Substance: SUCRALFATE
     Indication: Product used for unknown indication
  31. VITAMIN B12 [Concomitant]
     Active Substance: CYANOCOBALAMIN
     Indication: Product used for unknown indication
  32. FARXIGA [Concomitant]
     Active Substance: DAPAGLIFLOZIN PROPANEDIOL
     Indication: Product used for unknown indication

REACTIONS (16)
  - Gastrointestinal obstruction [Recovered/Resolved]
  - Haemoglobin decreased [Recovering/Resolving]
  - Cystocele [Recovered/Resolved]
  - Urinary tract infection [Recovered/Resolved]
  - Blood iron decreased [Recovering/Resolving]
  - Hydronephrosis [Recovering/Resolving]
  - Cataract [Unknown]
  - Urinary tract infection [Recovered/Resolved]
  - Mitral valve incompetence [Unknown]
  - Hypophagia [Recovered/Resolved]
  - Urinary tract infection [Not Recovered/Not Resolved]
  - Bundle branch block bilateral [Unknown]
  - Urinary tract infection [Recovered/Resolved]
  - Urinary tract infection [Recovered/Resolved]
  - Urinary tract infection [Recovered/Resolved]
  - Pelvic organ prolapse [Unknown]

NARRATIVE: CASE EVENT DATE: 20221226
